FAERS Safety Report 24592551 (Version 1)
Quarter: 2024Q4

REPORT INFORMATION
  Report Type: Report from Study
  Country: US (occurrence: US)
  Receive Date: 20241108
  Receipt Date: 20241108
  Transmission Date: 20250115
  Serious: Yes (Hospitalization, Other)
  Sender: ACADIA PHARMACEUTICALS
  Company Number: US-ACADIA PHARMACEUTICALS INC.-ACA-2024-PIM-006530

PATIENT
  Sex: Female

DRUGS (22)
  1. NUPLAZID [Suspect]
     Active Substance: PIMAVANSERIN TARTRATE
     Indication: Parkinson^s disease
     Dosage: 34 MILLIGRAM, QD
     Route: 048
  2. NUPLAZID [Suspect]
     Active Substance: PIMAVANSERIN TARTRATE
     Indication: Hallucination
  3. NUPLAZID [Suspect]
     Active Substance: PIMAVANSERIN TARTRATE
     Indication: Delusion
  4. CIPRO [Concomitant]
     Active Substance: CIPROFLOXACIN HYDROCHLORIDE
     Dosage: 500 MILLIGRAM
  5. MELATONIN [Concomitant]
     Active Substance: MELATONIN
     Dosage: 5 MILLIGRAM
  6. KLONOPIN [Concomitant]
     Active Substance: CLONAZEPAM
     Dosage: 1 MILLIGRAM
  7. ABILIFY [Concomitant]
     Active Substance: ARIPIPRAZOLE
     Dosage: 30 MILLIGRAM
  8. ASPIRIN [Concomitant]
     Active Substance: ASPIRIN
     Dosage: 81 MILLIGRAM
  9. CALCIUM [Concomitant]
     Active Substance: CALCIUM
     Dosage: 500 MILLIGRAM
  10. CARBIDOPA\LEVODOPA [Concomitant]
     Active Substance: CARBIDOPA\LEVODOPA
     Dosage: 25-250MG
  11. CRESTOR [Concomitant]
     Active Substance: ROSUVASTATIN CALCIUM
     Dosage: 40 MILLIGRAM
  12. GABAPENTIN [Concomitant]
     Active Substance: GABAPENTIN
     Dosage: 800 MILLIGRAM
  13. KEPPRA [Concomitant]
     Active Substance: LEVETIRACETAM
     Dosage: 1000 MILLIGRAM
  14. LAMICTAL [Concomitant]
     Active Substance: LAMOTRIGINE
     Dosage: 200 MILLIGRAM
  15. NEXIUM I.V. [Concomitant]
     Active Substance: ESOMEPRAZOLE SODIUM
     Dosage: 40 MILLIGRAM
  16. PROPRANOLOL [Concomitant]
     Active Substance: PROPRANOLOL HYDROCHLORIDE
     Dosage: 20 MILLIGRAM
  17. OMEPRAZOLE [Concomitant]
     Active Substance: OMEPRAZOLE
     Dosage: 40 MILLIGRAM
  18. SYNTHROID [Concomitant]
     Active Substance: LEVOTHYROXINE SODIUM
     Dosage: 300 MICROGRAM
  19. TRIMETHOPRIM [Concomitant]
     Active Substance: TRIMETHOPRIM
     Dosage: 100 MILLIGRAM
  20. VITAMIN D3 [Concomitant]
     Active Substance: CHOLECALCIFEROL
     Dosage: 25 MICROGRAM
  21. DICLOFENAC [Concomitant]
     Active Substance: DICLOFENAC
     Dosage: 1 PERCENT
  22. ZETIA [Concomitant]
     Active Substance: EZETIMIBE
     Dosage: 10 MILLIGRAM

REACTIONS (2)
  - Transient ischaemic attack [Unknown]
  - Cerebrovascular accident [Unknown]
